FAERS Safety Report 10150709 (Version 1)
Quarter: 2014Q2

REPORT INFORMATION
  Report Type: Spontaneous
  Country: SE (occurrence: SE)
  Receive Date: 20140502
  Receipt Date: 20140502
  Transmission Date: 20141212
  Serious: Yes (Other)
  Sender: FDA-Public Use
  Company Number: SE-BRISTOL-MYERS SQUIBB COMPANY-20689204

PATIENT
  Age: 48 Year
  Sex: Female

DRUGS (6)
  1. BYDUREON  2MG SUSPENSION [Suspect]
     Indication: TYPE 2 DIABETES MELLITUS
     Dosage: LAST DOSE: 16DEC2013
     Route: 058
     Dates: start: 20130913
  2. METFORMIN HCL [Suspect]
  3. VENLAFAXINE HCL [Concomitant]
  4. CYMBALTA [Concomitant]
  5. XANOR [Concomitant]
     Dosage: DEPOT
  6. SIMVASTATIN [Concomitant]

REACTIONS (2)
  - Injection site nodule [Not Recovered/Not Resolved]
  - Drug ineffective [Unknown]
